FAERS Safety Report 6531349-4 (Version None)
Quarter: 2010Q1

REPORT INFORMATION
  Report Type: 
  Country: None (occurrence: None)
  Receive Date: 20100108
  Receipt Date: 20091020
  Transmission Date: 20100710
  Serious: No
  Sender: FDA-Public Use
  Company Number: A0809400A

PATIENT
  Age: 63 Year
  Sex: Female

DRUGS (4)
  1. TYKERB [Suspect]
     Indication: BREAST CANCER
     Dosage: 1250MG PER DAY
     Route: 048
     Dates: start: 20090919, end: 20090930
  2. XELODA [Suspect]
     Indication: BREAST CANCER
     Dosage: 1500MG TWICE PER DAY
     Dates: start: 20090826, end: 20090929
  3. COUMADIN [Concomitant]
     Dosage: 1MG PER DAY
  4. LOTENSIN HCT [Concomitant]

REACTIONS (11)
  - DECREASED APPETITE [None]
  - DIARRHOEA [None]
  - DYSGEUSIA [None]
  - FATIGUE [None]
  - HEADACHE [None]
  - ILL-DEFINED DISORDER [None]
  - IRON DEFICIENCY [None]
  - RASH [None]
  - SKIN CHAPPED [None]
  - STOMATITIS [None]
  - WEIGHT DECREASED [None]
